FAERS Safety Report 14407276 (Version 1)
Quarter: 2018Q1

REPORT INFORMATION
  Report Type: Spontaneous
  Country: US (occurrence: US)
  Receive Date: 20180118
  Receipt Date: 20180118
  Transmission Date: 20180509
  Serious: Yes (Other)
  Sender: FDA-Public Use
  Company Number: US-ENDO PHARMACEUTICALS INC-2018-014342

PATIENT
  Sex: Female

DRUGS (1)
  1. HYDROCORTISONE TABLETS [Suspect]
     Active Substance: HYDROCORTISONE
     Indication: PRODUCT USED FOR UNKNOWN INDICATION
     Dosage: UNK UNKNOWN, UNKNOWN
     Route: 065

REACTIONS (3)
  - Bedridden [Recovered/Resolved]
  - Apparent death [Recovered/Resolved]
  - Hypokinesia [Recovered/Resolved]
